FAERS Safety Report 17777084 (Version 1)
Quarter: 2020Q2

REPORT INFORMATION
  Report Type: Spontaneous
  Country: US (occurrence: US)
  Receive Date: 20200513
  Receipt Date: 20200513
  Transmission Date: 20200714
  Serious: No
  Sender: FDA-Public Use
  Company Number: US-BAYER-2020-071718

PATIENT
  Age: 87 Year
  Sex: Female

DRUGS (3)
  1. PEPSIN [Concomitant]
     Active Substance: PEPSIN
  2. MIRALAX [Suspect]
     Active Substance: POLYETHYLENE GLYCOL 3350
     Indication: GASTROINTESTINAL DISORDER
     Dosage: 2 DF, QD
     Route: 048
     Dates: start: 202002
  3. IRON [Concomitant]
     Active Substance: IRON

REACTIONS (3)
  - Incorrect dose administered [Unknown]
  - Incorrect product administration duration [Not Recovered/Not Resolved]
  - Abdominal pain [Unknown]

NARRATIVE: CASE EVENT DATE: 202002
